FAERS Safety Report 9792939 (Version 3)
Quarter: 2016Q1

REPORT INFORMATION
  Report Type: Spontaneous
  Country: US (occurrence: US)
  Receive Date: 20140102
  Receipt Date: 20160208
  Transmission Date: 20160526
  Serious: Yes (Hospitalization, Other)
  Sender: FDA-Public Use
  Company Number: US-BAYER-2013-159494

PATIENT
  Age: 33 Year
  Sex: Female
  Weight: 60 kg

DRUGS (7)
  1. ADVIL [Concomitant]
     Active Substance: IBUPROFEN
  2. OCELLA [Suspect]
     Active Substance: DROSPIRENONE\ETHINYL ESTRADIOL
  3. ALEVE [Concomitant]
     Active Substance: NAPROXEN SODIUM
  4. YAZ [Suspect]
     Active Substance: DROSPIRENONE\ETHINYL ESTRADIOL
  5. KEPPRA [Concomitant]
     Active Substance: LEVETIRACETAM
  6. AMOXICILLIN. [Concomitant]
     Active Substance: AMOXICILLIN
  7. YASMIN [Suspect]
     Active Substance: DROSPIRENONE\ETHINYL ESTRADIOL

REACTIONS (7)
  - Deep vein thrombosis [None]
  - Embolic stroke [None]
  - Jugular vein thrombosis [None]
  - Pain [None]
  - Injury [None]
  - Transverse sinus thrombosis [None]
  - Pulmonary embolism [None]

NARRATIVE: CASE EVENT DATE: 200901
